FAERS Safety Report 8962238 (Version 1)
Quarter: 2012Q4

REPORT INFORMATION
  Report Type: 
  Country: US (occurrence: US)
  Receive Date: 20121211
  Receipt Date: 20121211
  Transmission Date: 20130627
  Serious: No
  Sender: FDA-Public Use
  Company Number: US-009507513-1212USA002327

PATIENT
  Age: 27 Year
  Sex: Female

DRUGS (1)
  1. AFRIN [Suspect]
     Indication: NASOPHARYNGITIS
     Dosage: UNK, Unknown
     Route: 045

REACTIONS (1)
  - Dry throat [Unknown]
